FAERS Safety Report 17318429 (Version 2)
Quarter: 2020Q1

REPORT INFORMATION
  Report Type: Spontaneous
  Country: GB (occurrence: GB)
  Receive Date: 20200124
  Receipt Date: 20200317
  Transmission Date: 20200409
  Serious: Yes (Other)
  Sender: FDA-Public Use
  Company Number: GB-ABBVIE-20K-167-3248808-00

PATIENT
  Age: 80 Year
  Weight: 71.2 kg

DRUGS (5)
  1. VENCLEXTA [Suspect]
     Active Substance: VENETOCLAX
     Route: 048
     Dates: start: 20200122, end: 20200129
  2. VENCLEXTA [Suspect]
     Active Substance: VENETOCLAX
     Route: 048
     Dates: start: 20200129, end: 2020
  3. RASBURICASE [Concomitant]
     Active Substance: RASBURICASE
     Indication: BLOOD URIC ACID INCREASED
  4. VENCLEXTA [Suspect]
     Active Substance: VENETOCLAX
     Indication: CHRONIC LYMPHOCYTIC LEUKAEMIA
     Route: 048
     Dates: start: 20200108, end: 20200116
  5. VENCLEXTA [Suspect]
     Active Substance: VENETOCLAX
     Route: 048
     Dates: start: 20200116, end: 20200122

REACTIONS (12)
  - Tumour lysis syndrome [Recovered/Resolved]
  - Blood phosphorus abnormal [Unknown]
  - Blood creatinine abnormal [Unknown]
  - Nausea [Unknown]
  - Respiratory rate increased [Unknown]
  - Tachycardia [Unknown]
  - Chronic lymphocytic leukaemia recurrent [Unknown]
  - Blood uric acid abnormal [Unknown]
  - Renal failure [Unknown]
  - Lymphadenopathy [Unknown]
  - Blood potassium abnormal [Unknown]
  - Fatigue [Not Recovered/Not Resolved]

NARRATIVE: CASE EVENT DATE: 2020
